FAERS Safety Report 9648943 (Version 1)
Quarter: 2013Q4

REPORT INFORMATION
  Report Type: Spontaneous
  Country: US (occurrence: None)
  Receive Date: 20131025
  Receipt Date: 20131025
  Transmission Date: 20140711
  Serious: Yes (Hospitalization)
  Sender: FDA-Public Use
  Company Number: None

PATIENT
  Age: 73 Year
  Sex: 0
  Weight: 80.29 kg

DRUGS (1)
  1. INVOKANA [Suspect]
     Indication: TYPE 2 DIABETES MELLITUS
     Dosage: AUG 28 - TO PRESENT, 300 MG, QD, PO
     Route: 048

REACTIONS (4)
  - Muscle spasms [None]
  - Speech disorder [None]
  - Unevaluable event [None]
  - Cerebrovascular accident [None]
